FAERS Safety Report 7527169-4 (Version None)
Quarter: 2011Q2

REPORT INFORMATION
  Report Type: 
  Country: None (occurrence: None)
  Receive Date: 20110607
  Receipt Date: 20110531
  Transmission Date: 20111010
  Serious: Yes (Hospitalization, Other)
  Sender: FDA-Public Use
  Company Number: US-BIOGENIDEC-2011BI020109

PATIENT
  Sex: Female

DRUGS (2)
  1. AVONEX [Suspect]
     Indication: MULTIPLE SCLEROSIS
     Route: 030
     Dates: start: 20030905, end: 20090601
  2. AVONEX [Suspect]
     Route: 030
     Dates: start: 20100505, end: 20110504

REACTIONS (3)
  - DIABETES MELLITUS [None]
  - CORONARY ARTERY STENOSIS [None]
  - MYOCARDIAL INFARCTION [None]
